FAERS Safety Report 11838480 (Version 1)
Quarter: 2015Q4

REPORT INFORMATION
  Report Type: Spontaneous
  Country: US (occurrence: US)
  Receive Date: 20151215
  Receipt Date: 20151215
  Transmission Date: 20160305
  Serious: No
  Sender: FDA-Public Use
  Company Number: GXBR2015US002205

PATIENT
  Sex: Male

DRUGS (1)
  1. RIFAMPIN CAPSULES USP [Suspect]
     Active Substance: RIFAMPIN
     Indication: CELLULITIS
     Dosage: 300 MG, BID
     Route: 048

REACTIONS (1)
  - Drug ineffective [Unknown]
